FAERS Safety Report 14262329 (Version 1)
Quarter: 2017Q4

REPORT INFORMATION
  Report Type: Spontaneous
  Country: US (occurrence: US)
  Receive Date: 20171208
  Receipt Date: 20171208
  Transmission Date: 20180321
  Serious: No
  Sender: FDA-Public Use
  Company Number: US-009507513-1711USA005042

PATIENT
  Age: 23 Year
  Sex: Female
  Weight: 96.15 kg

DRUGS (1)
  1. NEXPLANON [Suspect]
     Active Substance: ETONOGESTREL
     Indication: CONTRACEPTION
     Dosage: 1 DF, UNK
     Route: 059
     Dates: start: 20170118

REACTIONS (6)
  - Discomfort [Not Recovered/Not Resolved]
  - Implant site scar [Unknown]
  - Migration of implanted drug [Not Recovered/Not Resolved]
  - Implant site pain [Not Recovered/Not Resolved]
  - Tenderness [Not Recovered/Not Resolved]
  - Product quality issue [Unknown]

NARRATIVE: CASE EVENT DATE: 20170118
